FAERS Safety Report 5626363-7 (Version None)
Quarter: 2008Q1

REPORT INFORMATION
  Report Type: 
  Country: None (occurrence: None)
  Receive Date: 20080213
  Receipt Date: 20080213
  Transmission Date: 20080703
  Serious: Yes (Life-Threatening, Hospitalization, Other)
  Sender: FDA-Public Use
  Company Number: None

PATIENT
  Age: 77 Year
  Sex: Male
  Weight: 108.8633 kg

DRUGS (1)
  1. AVANDIA [Suspect]
     Indication: TYPE 2 DIABETES MELLITUS
     Dosage: (DURATION:  APPX 1 YEAR TO PRESENT)

REACTIONS (2)
  - CEREBROVASCULAR ACCIDENT [None]
  - ROAD TRAFFIC ACCIDENT [None]
